FAERS Safety Report 6590742-4 (Version None)
Quarter: 2010Q1

REPORT INFORMATION
  Report Type: 
  Country: None (occurrence: None)
  Receive Date: 20100219
  Receipt Date: 20100217
  Transmission Date: 20100710
  Serious: Yes (Death)
  Sender: FDA-Public Use
  Company Number: DE-JNJFOC-20091103414

PATIENT
  Age: 74 Year
  Sex: Female

DRUGS (11)
  1. HALDOL [Suspect]
     Indication: DRUG USE FOR UNKNOWN INDICATION
     Route: 048
     Dates: start: 20090825, end: 20090907
  2. HALDOL [Suspect]
     Route: 048
     Dates: start: 20090825, end: 20090907
  3. HALDOL [Suspect]
     Route: 048
     Dates: start: 20090825, end: 20090907
  4. METOPROLOL TARTRATE [Interacting]
     Indication: DRUG USE FOR UNKNOWN INDICATION
     Route: 048
     Dates: end: 20090910
  5. APROVEL [Suspect]
     Indication: DRUG USE FOR UNKNOWN INDICATION
     Route: 048
     Dates: end: 20090902
  6. JATROSOM N [Suspect]
     Indication: DRUG USE FOR UNKNOWN INDICATION
     Route: 048
     Dates: start: 20090821, end: 20090908
  7. JATROSOM N [Suspect]
     Dosage: 10 MG - 50 MG
     Route: 048
     Dates: start: 20090821, end: 20090908
  8. SIMVASTATIN [Concomitant]
     Route: 048
     Dates: end: 20090910
  9. MARCUMAR [Concomitant]
     Route: 048
     Dates: end: 20090908
  10. IBUPROFEN [Concomitant]
     Route: 048
     Dates: start: 20090907, end: 20090908
  11. PANTOPRAZOL [Concomitant]
     Route: 048
     Dates: start: 20090907, end: 20090908

REACTIONS (7)
  - CONVULSION [None]
  - DRUG INTERACTION [None]
  - EXTENSOR PLANTAR RESPONSE [None]
  - HYPONATRAEMIA [None]
  - NERVOUS SYSTEM DISORDER [None]
  - PUPILS UNEQUAL [None]
  - URINARY RETENTION [None]
